FAERS Safety Report 4320001-1 (Version None)
Quarter: 2004Q1

REPORT INFORMATION
  Report Type: 
  Country: None (occurrence: None)
  Receive Date: 20040317
  Receipt Date: 20040309
  Transmission Date: 20041129
  Serious: Yes (Death)
  Sender: FDA-Public Use
  Company Number: US-JNJFOC-20040100069

PATIENT
  Age: 85 Year
  Sex: Male

DRUGS (9)
  1. RISPERDAL [Suspect]
     Indication: DEMENTIA
     Dosage: 1 MG, 1 IN 1 DAY, ORAL
     Route: 048
     Dates: end: 20031227
  2. EXELON [Concomitant]
  3. COLCHICINE(COLCHICINE) [Concomitant]
  4. LORAZEPAM [Concomitant]
  5. DARVOCET (PROPACET) [Concomitant]
  6. AVAPRO [Concomitant]
  7. LASIX [Concomitant]
  8. LASIX [Concomitant]
  9. NIACIN [Concomitant]

REACTIONS (1)
  - DEATH [None]
